FAERS Safety Report 16334471 (Version 1)
Quarter: 2019Q2

REPORT INFORMATION
  Report Type: Report from Study
  Country: EG (occurrence: EG)
  Receive Date: 20190520
  Receipt Date: 20190520
  Transmission Date: 20190711
  Serious: Yes (Death, Hospitalization)
  Sender: FDA-Public Use
  Company Number: PHHY2019EG111441

PATIENT
  Age: 75 Year
  Sex: Female

DRUGS (6)
  1. KISQALI [Suspect]
     Active Substance: RIBOCICLIB
     Indication: BREAST CANCER
     Dosage: 400 MG, QD (21 DAYS)
     Route: 048
     Dates: start: 201811
  2. KISQALI [Suspect]
     Active Substance: RIBOCICLIB
     Indication: METASTASES TO BONE
  3. FEMARA [Suspect]
     Active Substance: LETROZOLE
     Indication: METASTASES TO BONE
  4. FEMARA [Suspect]
     Active Substance: LETROZOLE
     Indication: METASTASES TO LIVER
  5. FEMARA [Suspect]
     Active Substance: LETROZOLE
     Indication: BREAST CANCER
     Dosage: 2.5 MG, QD
     Route: 048
     Dates: start: 201811
  6. KISQALI [Suspect]
     Active Substance: RIBOCICLIB
     Indication: METASTASES TO LIVER

REACTIONS (13)
  - Metastases to lung [Fatal]
  - Respiratory failure [Fatal]
  - Breast cancer [Fatal]
  - Malignant neoplasm progression [Fatal]
  - Metastases to bone [Fatal]
  - Coma [Fatal]
  - Hepatic failure [Fatal]
  - Movement disorder [Fatal]
  - Renal failure [Fatal]
  - Pneumonia [Fatal]
  - Sepsis [Fatal]
  - Oliguria [Fatal]
  - Insomnia [Fatal]

NARRATIVE: CASE EVENT DATE: 20190327
